FAERS Safety Report 9352574 (Version 3)
Quarter: 2014Q2

REPORT INFORMATION
  Report Type: Spontaneous
  Country: PA (occurrence: PA)
  Receive Date: 20130618
  Receipt Date: 20140423
  Transmission Date: 20141212
  Serious: Yes (Other)
  Sender: FDA-Public Use
  Company Number: PA-ROCHE-1237859

PATIENT
  Age: 67 Year
  Sex: Female
  Weight: 65 kg

DRUGS (12)
  1. BONVIVA [Suspect]
     Indication: OSTEOPOROSIS
     Route: 065
  2. BONVIVA [Suspect]
     Route: 042
     Dates: start: 201005, end: 201203
  3. TRAMADOL [Concomitant]
     Route: 065
  4. PREGABALIN [Concomitant]
     Indication: PARKINSON^S DISEASE
     Route: 048
     Dates: start: 201302
  5. RASAGILINE [Concomitant]
     Indication: PARKINSON^S DISEASE
     Route: 048
     Dates: start: 201302
  6. CLONAZEPAM [Concomitant]
     Indication: PARKINSON^S DISEASE
     Route: 048
     Dates: start: 201302
  7. AMANTADINE [Concomitant]
     Indication: PARKINSON^S DISEASE
     Route: 048
     Dates: start: 201302
  8. LEVODOPA [Concomitant]
     Indication: PARKINSON^S DISEASE
     Route: 048
     Dates: start: 201302
  9. CARBIDOPA [Concomitant]
     Indication: PARKINSON^S DISEASE
     Route: 048
  10. RANITIDINE [Concomitant]
     Route: 065
  11. SULPIRIDE [Concomitant]
     Indication: PARKINSON^S DISEASE
  12. OMEPRAZOLE [Concomitant]
     Indication: GASTRITIS

REACTIONS (4)
  - Hip fracture [Unknown]
  - Femur fracture [Not Recovered/Not Resolved]
  - Spinal fracture [Unknown]
  - Arthralgia [Unknown]
